FAERS Safety Report 12143392 (Version 1)
Quarter: 2016Q1

REPORT INFORMATION
  Report Type: Other
  Country: CN (occurrence: CN)
  Receive Date: 20160304
  Receipt Date: 20160304
  Transmission Date: 20160526
  Serious: Yes (Other)
  Sender: FDA-Public Use
  Company Number: CN-LUPIN PHARMACEUTICALS INC.-2016-00027

PATIENT
  Age: 40 Year
  Sex: Female

DRUGS (3)
  1. RIFABUTIN. [Suspect]
     Active Substance: RIFABUTIN
     Indication: NODULAR VASCULITIS
     Route: 065
  2. MOXIFLOXACIN. [Concomitant]
     Active Substance: MOXIFLOXACIN
     Indication: NODULAR VASCULITIS
     Route: 065
  3. CLARITHROMYCIN. [Concomitant]
     Active Substance: CLARITHROMYCIN
     Indication: NODULAR VASCULITIS
     Route: 065

REACTIONS (1)
  - White blood cell count decreased [Recovered/Resolved]
